FAERS Safety Report 14596324 (Version 1)
Quarter: 2018Q1

REPORT INFORMATION
  Report Type: Spontaneous
  Country: GB (occurrence: GB)
  Receive Date: 20180303
  Receipt Date: 20180303
  Transmission Date: 20180509
  Serious: Yes (Life-Threatening)
  Sender: FDA-Public Use
  Company Number: GB-VIIV HEALTHCARE LIMITED-GB2017GSK175275

PATIENT
  Age: 33 Year
  Sex: Male

DRUGS (4)
  1. INTERFERON ALFA-N1. [Suspect]
     Active Substance: INTERFERON ALFA-N1
     Indication: ADULT T-CELL LYMPHOMA/LEUKAEMIA
     Dosage: 6 MILLION IU, QD
     Route: 058
     Dates: start: 20051101
  2. PEGINTERFERON ALFA-2A. [Suspect]
     Active Substance: PEGINTERFERON ALFA-2A
     Indication: ADULT T-CELL LYMPHOMA/LEUKAEMIA
     Dosage: 135-180 MCG ONCE WEEKLY
     Route: 065
  3. ZIDOVUDINE. [Suspect]
     Active Substance: ZIDOVUDINE
     Indication: ADULT T-CELL LYMPHOMA/LEUKAEMIA
     Dosage: 500 MG, BID
     Route: 065
     Dates: start: 20051101
  4. ZIDOVUDINE. [Suspect]
     Active Substance: ZIDOVUDINE
     Dosage: 250 MG,BID
     Route: 065

REACTIONS (1)
  - Transaminases increased [Recovered/Resolved]

NARRATIVE: CASE EVENT DATE: 20110201
